FAERS Safety Report 7081799-5 (Version None)
Quarter: 2010Q4

REPORT INFORMATION
  Report Type: 
  Country: None (occurrence: None)
  Receive Date: 20101103
  Receipt Date: 20101021
  Transmission Date: 20110411
  Serious: Yes (Hospitalization, Other)
  Sender: FDA-Public Use
  Company Number: US-ELI_LILLY_AND_COMPANY-US201010005588

PATIENT
  Sex: Male

DRUGS (6)
  1. ZYPREXA RELPREVV [Suspect]
     Indication: SCHIZOPHRENIA, PARANOID TYPE
     Dosage: 300 MG, DAILY (1/D)
     Dates: start: 20100901, end: 20100920
  2. ZYPREXA ZYDIS [Suspect]
     Indication: SCHIZOPHRENIA, PARANOID TYPE
     Dosage: 5 MG, DAILY (1/D)
     Dates: start: 20090601
  3. ABILIFY [Concomitant]
  4. SEROQUEL [Concomitant]
  5. PROLIXIN [Concomitant]
  6. ILOPERIDONE [Concomitant]

REACTIONS (2)
  - DRUG INEFFECTIVE [None]
  - SCHIZOPHRENIA [None]
